FAERS Safety Report 4644355-1 (Version None)
Quarter: 2005Q2

REPORT INFORMATION
  Report Type: 
  Country: None (occurrence: None)
  Receive Date: 20050331
  Receipt Date: 20041227
  Transmission Date: 20051028
  Serious: No
  Sender: FDA-Public Use
  Company Number: 04P-163-0284721-00

PATIENT
  Age: 71 Year
  Sex: Female
  Weight: 94.8018 kg

DRUGS (8)
  1. HUMIRA [Suspect]
     Indication: RHEUMATOID ARTHRITIS
     Dosage: 40 MG, 1 IN 2 WK, SUBCUTANEOUS
     Route: 058
     Dates: start: 20041001
  2. VITAMINS [Concomitant]
  3. CALCIUM WITH VITAMIN D [Concomitant]
  4. PREDNISONE TAB [Concomitant]
  5. SULFAZINE [Concomitant]
  6. FOLIC ACID [Concomitant]
  7. WATER PILL [Concomitant]
  8. ATORVASTATIN CALCIUM [Concomitant]

REACTIONS (3)
  - COUGH [None]
  - LARYNGITIS [None]
  - NASOPHARYNGITIS [None]
